FAERS Safety Report 23482987 (Version 1)
Quarter: 2024Q1

REPORT INFORMATION
  Report Type: Report from Study
  Country: US (occurrence: US)
  Receive Date: 20240205
  Receipt Date: 20240205
  Transmission Date: 20240410
  Serious: Yes (Other)
  Sender: FDA-Public Use
  Company Number: US-GILEAD-2024-0660442

PATIENT
  Sex: Male

DRUGS (1)
  1. AZTREONAM LYSINE [Suspect]
     Active Substance: AZTREONAM LYSINE
     Indication: Bacterial disease carrier
     Dosage: UNK75 MG TAKEN 28 DAYS ON AND 28 DAYS OFF. QUANTITY OF 84.
     Route: 065

REACTIONS (2)
  - Tracheostomy [Unknown]
  - Off label use [Not Recovered/Not Resolved]
